FAERS Safety Report 25722074 (Version 1)
Quarter: 2025Q3

REPORT INFORMATION
  Report Type: Other
  Country: GB (occurrence: GB)
  Receive Date: 20250825
  Receipt Date: 20250825
  Transmission Date: 20251020
  Serious: Yes (Other)
  Sender: GLENMARK
  Company Number: None

PATIENT
  Sex: Female

DRUGS (2)
  1. DEFERASIROX [Suspect]
     Active Substance: DEFERASIROX
     Indication: Product used for unknown indication
     Dosage: 1260 MILLIGRAM, OD
     Route: 065
  2. DEFERASIROX [Suspect]
     Active Substance: DEFERASIROX
     Route: 065

REACTIONS (1)
  - Serum ferritin increased [Unknown]
